FAERS Safety Report 5672677-4 (Version None)
Quarter: 2008Q1

REPORT INFORMATION
  Report Type: 
  Country: None (occurrence: None)
  Receive Date: 20080319
  Receipt Date: 20070329
  Transmission Date: 20080703
  Serious: No
  Sender: FDA-Public Use
  Company Number: US-KINGPHARMUSA00001-K200700388

PATIENT

DRUGS (2)
  1. ALTACE [Suspect]
     Dates: start: 20061001
  2. ALTACE [Suspect]
     Dosage: UNK, UNK

REACTIONS (3)
  - DYSGEUSIA [None]
  - GLOSSODYNIA [None]
  - ORAL PAIN [None]
